FAERS Safety Report 10216394 (Version 1)
Quarter: 2014Q2

REPORT INFORMATION
  Report Type: Spontaneous
  Country: US (occurrence: None)
  Receive Date: 20140603
  Receipt Date: 20140603
  Transmission Date: 20141212
  Serious: No
  Sender: FDA-Public Use
  Company Number: None

PATIENT
  Age: 41 Year
  Sex: Male
  Weight: 104.33 kg

DRUGS (2)
  1. TESTOSTERONE CYP 200 MG SUN PHARMA [Suspect]
     Indication: BLOOD TESTOSTERONE DECREASED
     Dosage: .5 ML?EVERY TWO WEEKS ?INJECTED INTERMUSCLUARILY
     Route: 030
     Dates: start: 20140419, end: 20140505
  2. TESTOSTERONE CYP 200 MG SUN PHARMA [Suspect]
     Indication: CONGENITAL ANOMALY
     Dosage: .5 ML?EVERY TWO WEEKS ?INJECTED INTERMUSCLUARILY
     Route: 030
     Dates: start: 20140419, end: 20140505

REACTIONS (8)
  - Peripheral swelling [None]
  - Pain in extremity [None]
  - Pain in extremity [None]
  - Arthralgia [None]
  - Gait disturbance [None]
  - Middle insomnia [None]
  - Musculoskeletal discomfort [None]
  - Muscle spasms [None]
